FAERS Safety Report 17021006 (Version 5)
Quarter: 2020Q1

REPORT INFORMATION
  Report Type: Report from Study
  Country: CO (occurrence: CO)
  Receive Date: 20191112
  Receipt Date: 20200129
  Transmission Date: 20200409
  Serious: Yes (Hospitalization, Other)
  Sender: FDA-Public Use
  Company Number: PHHY2017CO006832

PATIENT
  Age: 53 Year
  Sex: Female
  Weight: 51 kg

DRUGS (5)
  1. TASIGNA [Suspect]
     Active Substance: NILOTINIB
     Dosage: 800 MG, QD (ONCE DAILY)
     Route: 048
     Dates: start: 20140326, end: 201611
  2. BOSUTINIB [Concomitant]
     Active Substance: BOSUTINIB
     Indication: PRODUCT USED FOR UNKNOWN INDICATION
     Dosage: UNK
     Route: 065
  3. TASIGNA [Suspect]
     Active Substance: NILOTINIB
     Dosage: 800 MG, QD
     Route: 048
     Dates: start: 201406, end: 20191202
  4. TASIGNA [Suspect]
     Active Substance: NILOTINIB
     Dosage: 2 DF, Q12H
     Route: 048
  5. TASIGNA [Suspect]
     Active Substance: NILOTINIB
     Indication: CHRONIC MYELOID LEUKAEMIA
     Dosage: 200 MG, QID
     Route: 048
     Dates: start: 20140101

REACTIONS (27)
  - Weight decreased [Recovering/Resolving]
  - Fatigue [Unknown]
  - White blood cell count increased [Unknown]
  - Dizziness [Unknown]
  - Oedema peripheral [Unknown]
  - Chronic myeloid leukaemia recurrent [Unknown]
  - Inappropriate schedule of product administration [Unknown]
  - Spleen disorder [Recovering/Resolving]
  - Haemoglobin decreased [Unknown]
  - Coordination abnormal [Unknown]
  - Viral infection [Unknown]
  - Headache [Unknown]
  - Cholelithiasis [Unknown]
  - Stress [Unknown]
  - Malaise [Unknown]
  - Arthralgia [Unknown]
  - Feeling hot [Unknown]
  - Splenomegaly [Unknown]
  - Nervousness [Unknown]
  - Platelet count increased [Unknown]
  - Hypotension [Recovering/Resolving]
  - Drug ineffective [Unknown]
  - Pain [Unknown]
  - Peripheral swelling [Unknown]
  - Influenza [Unknown]
  - Decreased appetite [Unknown]
  - Mood altered [Unknown]

NARRATIVE: CASE EVENT DATE: 20161205
